FAERS Safety Report 5195754-3 (Version None)
Quarter: 2007Q1

REPORT INFORMATION
  Report Type: 
  Country: None (occurrence: None)
  Receive Date: 20070102
  Receipt Date: 20061219
  Transmission Date: 20070707
  Serious: Yes (Hospitalization)
  Sender: FDA-Public Use
  Company Number: FR-ROCHE-475982

PATIENT
  Age: 74 Year
  Sex: Male

DRUGS (15)
  1. RIVOTRIL [Suspect]
     Route: 065
     Dates: start: 20061106, end: 20061106
  2. NICARDIPINE HCL [Suspect]
     Indication: HYPERTENSION
     Route: 042
     Dates: start: 20061106, end: 20061107
  3. FOSPHENYTOIN SODIUM [Suspect]
     Route: 065
     Dates: start: 20061106, end: 20061106
  4. AUGMENTIN '125' [Suspect]
     Indication: INHALATION THERAPY
     Route: 065
     Dates: start: 20061106, end: 20061108
  5. SOLU-MEDROL [Suspect]
     Indication: DRUG USE FOR UNKNOWN INDICATION
     Route: 065
     Dates: start: 20061107, end: 20061108
  6. DEPAKENE [Suspect]
     Route: 065
     Dates: start: 20061107, end: 20061108
  7. TRACRIUM [Concomitant]
     Indication: INTUBATION
  8. HYPNOVEL [Concomitant]
     Indication: SEDATION
  9. PENTHOTAL [Concomitant]
     Indication: INTUBATION
  10. FENTANYL [Concomitant]
     Indication: SEDATION
  11. ATROVENT [Concomitant]
     Dosage: AEROSOL THERAPY
     Dates: start: 20061106, end: 20061108
  12. BRICANYL [Concomitant]
     Dosage: AEROSOL THERAPY
     Dates: start: 20061106, end: 20061108
  13. DETENSIEL [Concomitant]
     Dates: start: 20061108
  14. TRIATEC [Concomitant]
     Dates: start: 20061108, end: 20061115
  15. INSULIN [Concomitant]

REACTIONS (3)
  - RASH ERYTHEMATOUS [None]
  - RASH PUSTULAR [None]
  - WHITE BLOOD CELL DISORDER [None]
